FAERS Safety Report 13033728 (Version 1)
Quarter: 2016Q4

REPORT INFORMATION
  Report Type: Spontaneous
  Country: GB (occurrence: GB)
  Receive Date: 20161216
  Receipt Date: 20161216
  Transmission Date: 20170207
  Serious: Yes (Hospitalization, Disabling, Other)
  Sender: FDA-Public Use
  Company Number: GB-ACCORD-046470

PATIENT
  Age: 51 Year
  Sex: Female
  Weight: 70.4 kg

DRUGS (7)
  1. PYRIDOXINE [Concomitant]
     Active Substance: PYRIDOXINE
  2. MAGNESIUM GLYCEROPHOSPHATE [Concomitant]
     Active Substance: MAGNESIUM GLYCEROPHOSPHATE
  3. DEXAMETHASONE. [Concomitant]
     Active Substance: DEXAMETHASONE
  4. ONDANSETRON [Concomitant]
     Active Substance: ONDANSETRON
  5. DOMPERIDONE [Concomitant]
     Active Substance: DOMPERIDONE
  6. ETOPOSIDE. [Suspect]
     Active Substance: ETOPOSIDE
     Indication: CERVIX CARCINOMA STAGE IV
     Route: 042
     Dates: start: 20160801, end: 20161003
  7. CISPLATIN. [Suspect]
     Active Substance: CISPLATIN
     Indication: CERVIX CARCINOMA STAGE IV
     Route: 042
     Dates: start: 20160801, end: 20161003

REACTIONS (2)
  - Off label use [Unknown]
  - Aortic embolus [Not Recovered/Not Resolved]

NARRATIVE: CASE EVENT DATE: 20161018
